FAERS Safety Report 5647385-6 (Version None)
Quarter: 2008Q1

REPORT INFORMATION
  Report Type: 
  Country: None (occurrence: None)
  Receive Date: 20080229
  Receipt Date: 20080229
  Transmission Date: 20080703
  Serious: Yes (Life-Threatening, Hospitalization)
  Sender: FDA-Public Use
  Company Number: None

PATIENT
  Sex: Male
  Weight: 95.2554 kg

DRUGS (1)
  1. ZETIA [Suspect]
     Dosage: 10 MG 1 - A DAY TILL ADMITTED TO HOSPITAL
     Dates: start: 20041101, end: 20080101

REACTIONS (5)
  - GASTRIC DISORDER [None]
  - HEPATIC FAILURE [None]
  - HEPATITIS [None]
  - INFECTION [None]
  - PANCREATITIS [None]
